FAERS Safety Report 8520462-8 (Version None)
Quarter: 2012Q3

REPORT INFORMATION
  Report Type: 
  Country: None (occurrence: None)
  Receive Date: 20120712
  Receipt Date: 20120712
  Transmission Date: 20120928
  Serious: Yes (Other)
  Sender: FDA-Public Use
  Company Number: None

PATIENT
  Sex: Male
  Weight: 101.6057 kg

DRUGS (1)
  1. METAXALONE [Suspect]
     Indication: MIGRAINE
     Dosage: 1 TABLET 800 MG 3 TIMES A DAY
     Dates: start: 20120503, end: 20120523

REACTIONS (2)
  - DRUG INEFFECTIVE [None]
  - PRODUCT SUBSTITUTION ISSUE [None]
